FAERS Safety Report 8825991 (Version 1)
Quarter: 2012Q4

REPORT INFORMATION
  Report Type: 
  Country: US (occurrence: US)
  Receive Date: 20121005
  Receipt Date: 20121005
  Transmission Date: 20130627
  Serious: Yes (Death)
  Sender: FDA-Public Use
  Company Number: US-ROCHE-1130977

PATIENT

DRUGS (10)
  1. RITUXAN [Suspect]
     Indication: MANTLE CELL LYMPHOMA
     Route: 065
     Dates: start: 19980203
  2. RITUXAN [Suspect]
     Indication: OFF LABEL USE
     Route: 065
     Dates: start: 19980213
  3. RITUXAN [Suspect]
     Route: 065
     Dates: start: 19980220
  4. RITUXAN [Suspect]
     Route: 065
     Dates: start: 19980227
  5. RITUXAN [Suspect]
     Route: 065
     Dates: start: 19981023
  6. RITUXAN [Suspect]
     Route: 065
     Dates: start: 19981030
  7. RITUXAN [Suspect]
     Route: 065
     Dates: start: 19981106
  8. RITUXAN [Suspect]
     Route: 065
     Dates: start: 19981113
  9. RITUXAN [Suspect]
     Route: 065
     Dates: start: 19990929
  10. RITUXAN [Suspect]
     Route: 065
     Dates: start: 19991007

REACTIONS (1)
  - Death [Fatal]
